FAERS Safety Report 14967638 (Version 3)
Quarter: 2018Q4

REPORT INFORMATION
  Report Type: Spontaneous
  Country: US (occurrence: US)
  Receive Date: 20180604
  Receipt Date: 20181009
  Transmission Date: 20190204
  Serious: Yes (Other)
  Sender: FDA-Public Use
  Company Number: US-JNJFOC-20180530640

PATIENT
  Sex: Male
  Weight: 46.81 kg

DRUGS (4)
  1. RISPERDAL [Suspect]
     Active Substance: RISPERIDONE
     Indication: ABNORMAL BEHAVIOUR
     Route: 048
  2. TOPAMAX [Concomitant]
     Active Substance: TOPIRAMATE
     Indication: SEIZURE
     Dosage: THREE CAPSULES IN THE MORNING, TWO IN THE AFTERNOON, AND THREE AT BEDTIME.
     Route: 065
  3. DEPAKOTE [Concomitant]
     Active Substance: DIVALPROEX SODIUM
     Indication: SEIZURE
     Dosage: THREE CAPSULES IN THE MORNING, TWO IN THE AFTERNOON, AND THREE AT BEDTIME.
     Route: 065
  4. RISPERDAL [Suspect]
     Active Substance: RISPERIDONE
     Indication: PRODUCT USED FOR UNKNOWN INDICATION
     Route: 048

REACTIONS (5)
  - Muscular weakness [Unknown]
  - Intentional self-injury [Unknown]
  - Treatment noncompliance [Unknown]
  - Agitation [Unknown]
  - Fall [Unknown]
